FAERS Safety Report 23417739 (Version 3)
Quarter: 2024Q2

REPORT INFORMATION
  Report Type: Spontaneous
  Country: US (occurrence: US)
  Receive Date: 20240118
  Receipt Date: 20240508
  Transmission Date: 20240716
  Serious: Yes (Other)
  Sender: FDA-Public Use
  Company Number: US-Vifor (International) Inc.-VIT-2024-00426

PATIENT
  Sex: Female

DRUGS (1)
  1. MIRCERA [Suspect]
     Active Substance: METHOXY POLYETHYLENE GLYCOL-EPOETIN BETA
     Indication: Nephrogenic anaemia
     Dosage: LAST ADMINISTRATION DATE OF MIRCERA: 27-NOV-2023

REACTIONS (5)
  - Aplasia pure red cell [Unknown]
  - Blood erythropoietin decreased [Unknown]
  - Reticulocyte count decreased [Unknown]
  - Anaemia [Unknown]
  - Product use issue [Unknown]
